FAERS Safety Report 8192647-4 (Version None)
Quarter: 2012Q1

REPORT INFORMATION
  Report Type: 
  Country: None (occurrence: None)
  Receive Date: 20120221
  Receipt Date: 20111118
  Transmission Date: 20120608
  Serious: No
  Sender: FDA-Public Use
  Company Number: 1000025636

PATIENT
  Age: 82 Year
  Sex: Female

DRUGS (8)
  1. LOSARTAN(LOSARTAN)(LOSARTAN [Concomitant]
  2. NAMENDA [Concomitant]
  3. INHALERS (NOS)(INHALERS (NOS))(INHALERS (NOS)) [Concomitant]
  4. MIRTAZAPINE [Concomitant]
  5. TRAZODONE(TRAZODONE)(TRAZODONE) [Concomitant]
  6. VIIBRYD [Suspect]
     Indication: DEPRESSION
     Dosage: 10 MG (10 MG,1 IN 1 D),ORAL
     Route: 048
     Dates: start: 20111115
  7. ARICEPT [Concomitant]
  8. FAMOTIDINE [Concomitant]

REACTIONS (1)
  - DIARRHOEA [None]
